FAERS Safety Report 4983627-8 (Version None)
Quarter: 2006Q2

REPORT INFORMATION
  Report Type: 
  Country: None (occurrence: None)
  Receive Date: 20060425
  Receipt Date: 20060425
  Transmission Date: 20061013
  Serious: Yes (Hospitalization, Other)
  Sender: FDA-Public Use
  Company Number: None

PATIENT
  Sex: Male
  Weight: 68.9467 kg

DRUGS (8)
  1. MORPHINE [Suspect]
     Indication: PAIN
  2. FLUOXETINE [Suspect]
     Indication: DEPRESSION
  3. ENALAPRIL 5 MG DAILY [Suspect]
  4. GALANTAMINE 8 MG BID [Suspect]
  5. .... [Concomitant]
  6. .... [Concomitant]
  7. .... [Concomitant]
  8. ... [Concomitant]

REACTIONS (2)
  - DIZZINESS [None]
  - VOMITING [None]
